FAERS Safety Report 16455810 (Version 1)
Quarter: 2019Q2

REPORT INFORMATION
  Report Type: Spontaneous
  Country: US (occurrence: US)
  Receive Date: 20190620
  Receipt Date: 20190620
  Transmission Date: 20190711
  Serious: No
  Sender: FDA-Public Use
  Company Number: US-AMGEN-USASP2019097405

PATIENT
  Age: 28 Year
  Sex: Female

DRUGS (1)
  1. NEULASTA [Suspect]
     Active Substance: PEGFILGRASTIM
     Indication: UNDIFFERENTIATED SARCOMA
     Dosage: UNK UNK, Q3WK (EVERY 3 WEEKS, 24H POST CHEMO)
     Route: 065

REACTIONS (2)
  - Arthralgia [Unknown]
  - Off label use [Unknown]
